FAERS Safety Report 24618228 (Version 1)
Quarter: 2024Q4

REPORT INFORMATION
  Report Type: Spontaneous
  Country: CA (occurrence: CA)
  Receive Date: 20241114
  Receipt Date: 20241114
  Transmission Date: 20250115
  Serious: Yes (Other)
  Sender: Haleon PLC
  Company Number: CA-002147023-NVSC2024CA168059

PATIENT
  Age: 70 Year
  Sex: Female

DRUGS (17)
  1. DICLOFENAC [Suspect]
     Active Substance: DICLOFENAC
     Indication: Myalgia
     Route: 065
  2. Acetaminophen/guaifenesin/phenylephrine hydrochloride [Concomitant]
     Indication: Product used for unknown indication
     Route: 065
  3. HYDROMORPHONE [Concomitant]
     Active Substance: HYDROMORPHONE
     Indication: Product used for unknown indication
     Route: 065
  4. ROSUVASTATIN [Concomitant]
     Active Substance: ROSUVASTATIN
     Indication: Product used for unknown indication
     Route: 065
  5. PSEUDOEPHEDRINE [Suspect]
     Active Substance: PSEUDOEPHEDRINE
     Indication: Product used for unknown indication
     Route: 065
  6. PANTOPRAZOLE SODIUM [Suspect]
     Active Substance: PANTOPRAZOLE SODIUM
     Indication: Gastrointestinal disorder
     Route: 065
  7. AMITRIPTYLINE [Suspect]
     Active Substance: AMITRIPTYLINE
     Indication: Hypertension
     Route: 065
  8. AMITRIPTYLINE [Suspect]
     Active Substance: AMITRIPTYLINE
     Indication: Myalgia
     Route: 065
  9. VENLAFAXINE HYDROCHLORIDE [Suspect]
     Active Substance: VENLAFAXINE HYDROCHLORIDE
     Indication: Product used for unknown indication
     Route: 065
  10. DICLOFENAC SODIUM [Suspect]
     Active Substance: DICLOFENAC SODIUM
     Indication: Myalgia
     Route: 065
  11. RANITIDINE [Concomitant]
     Active Substance: RANITIDINE
     Indication: Product used for unknown indication
     Route: 065
  12. CELECOXIB [Suspect]
     Active Substance: CELECOXIB
     Indication: Product used for unknown indication
     Route: 065
  13. PSEUDOEPHEDRINE HYDROCHLORIDE [Suspect]
     Active Substance: PSEUDOEPHEDRINE HYDROCHLORIDE
     Indication: Product used for unknown indication
     Route: 065
  14. PANTOPRAZOLE SODIUM ANHYDROUS [Suspect]
     Active Substance: PANTOPRAZOLE SODIUM ANHYDROUS
     Indication: Gastrointestinal disorder
     Route: 065
  15. DIPHENHYDRAMINE HYDROCHLORIDE [Suspect]
     Active Substance: DIPHENHYDRAMINE HYDROCHLORIDE
     Indication: Hypertension
     Route: 065
  16. ROSUVASTATIN CALCIUM [Suspect]
     Active Substance: ROSUVASTATIN CALCIUM
     Indication: Product used for unknown indication
     Route: 065
  17. ADVIL [Suspect]
     Active Substance: IBUPROFEN
     Indication: Myalgia
     Route: 065

REACTIONS (5)
  - Myalgia [Unknown]
  - Gastrointestinal disorder [Unknown]
  - Vitamin B12 decreased [Unknown]
  - Urinary retention [Unknown]
  - Hypertension [Unknown]
